FAERS Safety Report 8393548-9 (Version None)
Quarter: 2012Q2

REPORT INFORMATION
  Report Type: 
  Country: None (occurrence: None)
  Receive Date: 20120529
  Receipt Date: 20120525
  Transmission Date: 20120825
  Serious: Yes (Other)
  Sender: FDA-Public Use
  Company Number: US-AMGEN-USASP2012032866

PATIENT
  Age: 70 Year
  Sex: Male

DRUGS (1)
  1. XGEVA [Suspect]
     Indication: PROSTATE CANCER METASTATIC
     Dates: start: 20120101, end: 20120101

REACTIONS (1)
  - OSTEONECROSIS OF JAW [None]
